FAERS Safety Report 15337365 (Version 3)
Quarter: 2022Q2

REPORT INFORMATION
  Report Type: Spontaneous
  Country: US (occurrence: US)
  Receive Date: 20180831
  Receipt Date: 20220628
  Transmission Date: 20220721
  Serious: Yes (Death, Life-Threatening, Hospitalization, Other)
  Sender: FDA-Public Use
  Company Number: None

PATIENT
  Age: 57 Year
  Sex: Female

DRUGS (1)
  1. OXYCODONE HYDROCHLORIDE [Suspect]
     Active Substance: OXYCODONE HYDROCHLORIDE
     Indication: Product used for unknown indication
     Dosage: UNK UNK, SINGLE (CRUSHED OXYCODONE PARTICLES, TWO SYRINGES)
     Route: 042

REACTIONS (10)
  - Pulmonary granuloma [Fatal]
  - Pulmonary hypertension [Unknown]
  - Right ventricular failure [Unknown]
  - Ventricular fibrillation [Unknown]
  - Pulmonary embolism [Unknown]
  - Pulmonary infarction [Unknown]
  - Atrial flutter [Unknown]
  - Hypotension [Unknown]
  - Intentional product misuse [Unknown]
  - Incorrect route of product administration [Unknown]
